FAERS Safety Report 6304539-3 (Version None)
Quarter: 2009Q3

REPORT INFORMATION
  Report Type: 
  Country: None (occurrence: None)
  Receive Date: 20090806
  Receipt Date: 20090731
  Transmission Date: 20100115
  Serious: Yes (Other)
  Sender: FDA-Public Use
  Company Number: CHPA2009US16210

PATIENT
  Age: 83 Year
  Sex: Male
  Weight: 88.4 kg

DRUGS (2)
  1. BENEFIBER PLUS CALCIUM WITH WHEAT DEXTRIN(NCH)(CALCIUM CARBONATE, WHEA [Suspect]
     Indication: CONSTIPATION
     Dosage: 6 TSP, BID, ORAL
     Route: 048
     Dates: start: 20090201
  2. NUTRITION SUPPLEMENTS (NUTRITION SUPPLEMENTS) [Concomitant]

REACTIONS (2)
  - CHOLELITHIASIS [None]
  - OVERDOSE [None]
